FAERS Safety Report 5986993-X (Version None)
Quarter: 2008Q4

REPORT INFORMATION
  Report Type: 
  Country: None (occurrence: None)
  Receive Date: 20081209
  Receipt Date: 20081205
  Transmission Date: 20090506
  Serious: Yes (Hospitalization)
  Sender: FDA-Public Use
  Company Number: A0759300A

PATIENT
  Age: 55 Year
  Sex: Male

DRUGS (12)
  1. ADVAIR HFA [Suspect]
     Indication: CHRONIC OBSTRUCTIVE PULMONARY DISEASE
     Dosage: 1PUFF TWICE PER DAY
     Route: 055
  2. SINGULAIR [Concomitant]
  3. COMBIVENT [Concomitant]
  4. SPIRIVA [Concomitant]
  5. PREDNISONE TAB [Concomitant]
  6. ENALAPRIL MALEATE [Concomitant]
  7. CARTIA XT [Concomitant]
  8. DIGOXIN [Concomitant]
  9. NITROGLYCERIN [Concomitant]
  10. CARDIZEM [Concomitant]
  11. WARFARIN SODIUM [Concomitant]
  12. SIMVASTATIN [Concomitant]

REACTIONS (3)
  - DYSPNOEA [None]
  - PNEUMONIA [None]
  - STAPHYLOCOCCAL INFECTION [None]
